FAERS Safety Report 6732028-0 (Version None)
Quarter: 2010Q2

REPORT INFORMATION
  Report Type: 
  Country: None (occurrence: None)
  Receive Date: 20100519
  Receipt Date: 20090617
  Transmission Date: 20101027
  Serious: Yes (Death, Hospitalization)
  Sender: FDA-Public Use
  Company Number: PHHY2008US03840

PATIENT
  Sex: Male
  Weight: 111.57 kg

DRUGS (7)
  1. EXJADE [Suspect]
     Indication: LEUKAEMIA
     Dosage: 1500 MG, QD
     Route: 048
     Dates: start: 20071019, end: 20071120
  2. EXJADE [Suspect]
     Indication: HAEMOCHROMATOSIS
  3. FUROSEMIDE [Concomitant]
     Indication: OEDEMA PERIPHERAL
     Dosage: 40 MG, QD
     Dates: end: 20080104
  4. TOPROL-XL [Concomitant]
     Indication: HYPERTENSION
     Dosage: 25 MG, QD
     Dates: start: 20020614, end: 20080104
  5. UNIVASC [Concomitant]
     Indication: HYPERTENSION
     Dosage: 15 MG, QD
     Dates: start: 20010901, end: 20080104
  6. BENICAR [Concomitant]
     Indication: HYPERTENSION
     Dosage: 20 MG, QD
     Dates: start: 20051012, end: 20080104
  7. RANITIDINE [Concomitant]
     Indication: GASTROOESOPHAGEAL REFLUX DISEASE
     Dosage: 300 MG, BID
     Dates: start: 20061001

REACTIONS (12)
  - ASCITES [None]
  - BLOOD CREATININE INCREASED [None]
  - BLOOD GLUCOSE INCREASED [None]
  - BLOOD UREA INCREASED [None]
  - CHRONIC HEPATIC FAILURE [None]
  - GASTROINTESTINAL HAEMORRHAGE [None]
  - GRANULOMA [None]
  - HEPATIC CIRRHOSIS [None]
  - PARACENTESIS [None]
  - PORTAL VEIN THROMBOSIS [None]
  - RENAL FAILURE [None]
  - SPLENOMEGALY [None]
